FAERS Safety Report 17305468 (Version 1)
Quarter: 2020Q1

REPORT INFORMATION
  Report Type: Spontaneous
  Country: US (occurrence: US)
  Receive Date: 20200123
  Receipt Date: 20200123
  Transmission Date: 20200409
  Serious: Yes (Other)
  Sender: FDA-Public Use
  Company Number: US-PFIZER INC-2019349479

PATIENT
  Age: 72 Year
  Sex: Female

DRUGS (3)
  1. IBRANCE [Suspect]
     Active Substance: PALBOCICLIB
     Indication: BREAST CANCER FEMALE
     Dosage: 125 MG, UNK
  2. IBRANCE [Suspect]
     Active Substance: PALBOCICLIB
     Dosage: 100 MG, CYCLIC (100MG QD (ONCE A DAY) FOR 21 DAYS ON, 7 DAYS OFF)
     Route: 048
     Dates: start: 201909
  3. IBRANCE [Suspect]
     Active Substance: PALBOCICLIB
     Dosage: 100 MG, UNK

REACTIONS (9)
  - Dizziness [Unknown]
  - Hypokalaemia [Recovering/Resolving]
  - Constipation [Unknown]
  - Product dispensing error [Unknown]
  - Product dose omission [Unknown]
  - Cough [Unknown]
  - Nasal congestion [Unknown]
  - Fatigue [Unknown]
  - Diarrhoea [Unknown]
